FAERS Safety Report 24680350 (Version 1)
Quarter: 2024Q4

REPORT INFORMATION
  Report Type: Spontaneous
  Country: US (occurrence: US)
  Receive Date: 20241129
  Receipt Date: 20241129
  Transmission Date: 20250114
  Serious: No
  Sender: BAXTER
  Company Number: US-BAXTER-2024BAX028401

PATIENT
  Sex: Female

DRUGS (1)
  1. PENICILLIN G [Suspect]
     Active Substance: PENICILLIN G
     Dosage: PENICILLIN AT AN UNREPORTED DOSE/FREQUENCY
     Route: 065

REACTIONS (1)
  - Drug hypersensitivity [Unknown]
